FAERS Safety Report 9275115 (Version 1)
Quarter: 2013Q2

REPORT INFORMATION
  Report Type: Spontaneous
  Country: US (occurrence: None)
  Receive Date: 20130430
  Receipt Date: 20130430
  Transmission Date: 20140414
  Serious: Yes (Death)
  Sender: FDA-Public Use
  Company Number: 2013-138

PATIENT
  Age: 74 Year
  Sex: Male

DRUGS (7)
  1. FAZACLO (CLOZAPINE, USP) ODT (ORAL DISINTEGRATING TABLET) [Suspect]
     Route: 048
     Dates: start: 20130408, end: 20130415
  2. VITAMIN D3 (COLECALCIFEROL) [Concomitant]
  3. PRIMIDONE (PRIMIDONE) [Concomitant]
  4. PROTONIX (PANTOPRAZOLE SODIUM SESQUIHYDRATE) [Concomitant]
  5. MULTIVITAMIN (VITAMINS NOS) [Concomitant]
  6. LOPRESSOR (METOPROLOL TARTRATE) [Concomitant]
  7. DIGOXIN (DIGOXIN) [Concomitant]

REACTIONS (1)
  - Pneumonia aspiration [None]
